FAERS Safety Report 9350335 (Version 3)
Quarter: 2013Q3

REPORT INFORMATION
  Report Type: Report from Study
  Country: CA (occurrence: CA)
  Receive Date: 20130617
  Receipt Date: 20130718
  Transmission Date: 20140515
  Serious: Yes (Hospitalization, Other)
  Sender: FDA-Public Use
  Company Number: CA-ROCHE-1236370

PATIENT
  Age: 77 Year
  Sex: Female

DRUGS (4)
  1. LUCENTIS [Suspect]
     Indication: RETINAL VEIN OCCLUSION
     Route: 050
     Dates: start: 20130226
  2. LUCENTIS [Suspect]
     Route: 050
     Dates: start: 20130403
  3. LUCENTIS [Suspect]
     Route: 050
     Dates: start: 20130501
  4. LUCENTIS [Suspect]
     Route: 050
     Dates: start: 20130605

REACTIONS (5)
  - Blindness unilateral [Unknown]
  - Sensory disturbance [Unknown]
  - Bacterial infection [Not Recovered/Not Resolved]
  - Drug effect decreased [Unknown]
  - Pain [Unknown]
